FAERS Safety Report 15301325 (Version 2)
Quarter: 2019Q2

REPORT INFORMATION
  Report Type: Spontaneous
  Country: CA (occurrence: CA)
  Receive Date: 20180821
  Receipt Date: 20190415
  Transmission Date: 20190711
  Serious: Yes (Hospitalization)
  Sender: FDA-Public Use
  Company Number: CA-HLSUS-2018-CA-001229

PATIENT
  Age: 47 Year
  Sex: Female
  Weight: 68.5 kg

DRUGS (17)
  1. DOCUSATE SODIUM. [Concomitant]
     Active Substance: DOCUSATE SODIUM
  2. LACTULOSE SYRUP [Concomitant]
     Active Substance: LACTULOSE
  3. ARIPIPRAZOLE. [Concomitant]
     Active Substance: ARIPIPRAZOLE
  4. CLOZARIL [Suspect]
     Active Substance: CLOZAPINE
     Indication: SCHIZOPHRENIA
     Dosage: 175MG
     Route: 048
     Dates: start: 20170502
  5. LORAZEPAM. [Concomitant]
     Active Substance: LORAZEPAM
  6. MAGNESIUM HYDROXIDE. [Concomitant]
     Active Substance: MAGNESIUM HYDROXIDE
  7. PANTOPRAZOLE [Concomitant]
     Active Substance: PANTOPRAZOLE
  8. CASCARA FLUID EXT [Concomitant]
  9. SALBUTAMOL [Concomitant]
     Active Substance: ALBUTEROL
  10. ACETAMINOPHEN. [Concomitant]
     Active Substance: ACETAMINOPHEN
  11. BETAMETHASONE. [Concomitant]
     Active Substance: BETAMETHASONE
  12. BRONCHOPHAN EXPECTORANT [Concomitant]
  13. LIDOCAINE. [Concomitant]
     Active Substance: LIDOCAINE
  14. SENNOSIDES. [Concomitant]
     Active Substance: SENNOSIDES
  15. TRAZODONE [Concomitant]
     Active Substance: TRAZODONE HYDROCHLORIDE
  16. ZOPICLONE [Concomitant]
     Active Substance: ZOPICLONE
  17. FLUTICASONE. [Concomitant]
     Active Substance: FLUTICASONE

REACTIONS (1)
  - Myoclonic epilepsy [Recovered/Resolved]
